FAERS Safety Report 4394136-1 (Version None)
Quarter: 2004Q3

REPORT INFORMATION
  Report Type: 
  Country: None (occurrence: None)
  Receive Date: 20040712
  Receipt Date: 20040629
  Transmission Date: 20050211
  Serious: Yes (Hospitalization)
  Sender: FDA-Public Use
  Company Number: PHNU2004DE02333

PATIENT
  Age: 34 Year
  Sex: Female
  Weight: 86 kg

DRUGS (3)
  1. LOCOL [Suspect]
     Indication: TYPE IIA HYPERLIPIDAEMIA
     Dosage: 1 DF, QD
     Route: 048
     Dates: start: 20040501
  2. TRIMIPRAMINE [Concomitant]
  3. CONTRACEPTIVES UNS [Concomitant]

REACTIONS (3)
  - DIALYSIS [None]
  - PANCREATITIS ACUTE [None]
  - RESPIRATORY FAILURE [None]
